FAERS Safety Report 25396855 (Version 3)
Quarter: 2025Q3

REPORT INFORMATION
  Report Type: Spontaneous
  Country: CA (occurrence: CA)
  Receive Date: 20250604
  Receipt Date: 20250822
  Transmission Date: 20251021
  Serious: Yes (Hospitalization, Other)
  Sender: PFIZER
  Company Number: CA-PFIZER INC-202500089475

PATIENT
  Age: 35 Year
  Sex: Male

DRUGS (4)
  1. ABRILADA [Suspect]
     Active Substance: ADALIMUMAB-AFZB
     Indication: Crohn^s disease
     Route: 058
     Dates: start: 20250118
  2. ABRILADA [Suspect]
     Active Substance: ADALIMUMAB-AFZB
     Indication: Sacroiliitis
     Route: 058
     Dates: start: 20250530
  3. PREDNISONE [Concomitant]
     Active Substance: PREDNISONE
     Indication: Raynaud^s phenomenon
     Dosage: 50 MG, DAILY
     Dates: start: 202504
  4. HYDROXYCHLOROQUINE [Concomitant]
     Active Substance: HYDROXYCHLOROQUINE
     Indication: Raynaud^s phenomenon
     Dosage: 400, DAILY

REACTIONS (4)
  - Small intestinal obstruction [Unknown]
  - Systemic lupus erythematosus [Not Recovered/Not Resolved]
  - Cholangitis sclerosing [Unknown]
  - Hepatic enzyme abnormal [Unknown]

NARRATIVE: CASE EVENT DATE: 20250101
